FAERS Safety Report 4947748-8 (Version None)
Quarter: 2006Q1

REPORT INFORMATION
  Report Type: 
  Country: None (occurrence: None)
  Receive Date: 20060314
  Receipt Date: 20060301
  Transmission Date: 20060701
  Serious: No
  Sender: FDA-Public Use
  Company Number: 2006P1000127

PATIENT
  Sex: Female

DRUGS (1)
  1. NICARDIPINE HYDROCHLORIDE [Suspect]
     Indication: TOCOLYSIS
     Dosage: IV
     Route: 042

REACTIONS (1)
  - ACUTE PULMONARY OEDEMA [None]
